FAERS Safety Report 5206435-1 (Version None)
Quarter: 2007Q1

REPORT INFORMATION
  Report Type: 
  Country: None (occurrence: None)
  Receive Date: 20070111
  Receipt Date: 20070105
  Transmission Date: 20070707
  Serious: Yes (Other)
  Sender: FDA-Public Use
  Company Number: CA-PFIZER INC-2007002150

PATIENT
  Sex: Male

DRUGS (2)
  1. FRAGMIN [Suspect]
     Indication: DEEP VEIN THROMBOSIS
     Route: 042
  2. FRAGMIN [Suspect]
     Route: 058

REACTIONS (2)
  - POOR WEIGHT GAIN NEONATAL [None]
  - VOMITING [None]
